FAERS Safety Report 9703745 (Version 1)
Quarter: 2013Q4

REPORT INFORMATION
  Report Type: Spontaneous
  Country: DE (occurrence: DE)
  Receive Date: 20131122
  Receipt Date: 20131122
  Transmission Date: 20140711
  Serious: Yes (Other)
  Sender: FDA-Public Use
  Company Number: PHHY2013DE133873

PATIENT
  Sex: Female

DRUGS (3)
  1. AFINITOR [Suspect]
     Dosage: 10 MG/DAY
  2. AFINITOR [Suspect]
     Dosage: 10 MG, QOD
  3. AFINITOR [Suspect]
     Dosage: 5 MG/DAY

REACTIONS (1)
  - Lung disorder [Unknown]
